FAERS Safety Report 6549644-1 (Version None)
Quarter: 2010Q1

REPORT INFORMATION
  Report Type: 
  Country: None (occurrence: None)
  Receive Date: 20100119
  Receipt Date: 20100106
  Transmission Date: 20100710
  Serious: Yes (Disabling)
  Sender: FDA-Public Use
  Company Number: 2010SP001040

PATIENT
  Age: 52 Year
  Sex: Female

DRUGS (5)
  1. ROCURONIUM BROMIDE [Suspect]
     Indication: DRUG USE FOR UNKNOWN INDICATION
     Dosage: 50 MG, ONCE; IV
     Route: 042
     Dates: start: 20080731, end: 20080731
  2. LEVOTHYROXINE SODIUM [Concomitant]
  3. ALBUTEROL [Concomitant]
  4. FLUTICASONE [Concomitant]
  5. FENTANYL [Concomitant]

REACTIONS (2)
  - ANAPHYLACTIC REACTION [None]
  - BRAIN HYPOXIA [None]
